FAERS Safety Report 9664856 (Version 2)
Quarter: 2013Q4

REPORT INFORMATION
  Report Type: Spontaneous
  Country: IT (occurrence: None)
  Receive Date: 20131031
  Receipt Date: 20131126
  Transmission Date: 20140711
  Serious: Yes (Hospitalization)
  Sender: FDA-Public Use
  Company Number: 2013AP009295

PATIENT
  Age: 80 Year
  Sex: Female

DRUGS (4)
  1. DONEPEZIL HYDROCHLORIDE [Suspect]
     Indication: COGNITIVE DISORDER
     Route: 048
     Dates: start: 20130624, end: 20130915
  2. TICLOPIDINA (TICLOPIDINE HYDROCHLORIDE) [Concomitant]
  3. LESCOL (FLUVASTATIN SODIUM) [Concomitant]
  4. CITALOPRAM (CITALOPRAM) [Concomitant]

REACTIONS (3)
  - Gait disturbance [None]
  - Balance disorder [None]
  - Convulsion [None]
